FAERS Safety Report 14499775 (Version 1)
Quarter: 2018Q1

REPORT INFORMATION
  Report Type: Spontaneous
  Country: US (occurrence: US)
  Receive Date: 20180207
  Receipt Date: 20180207
  Transmission Date: 20180509
  Serious: Yes (Death, Hospitalization, Other)
  Sender: FDA-Public Use
  Company Number: US-GLAXOSMITHKLINE-US2018020818

PATIENT
  Age: 71 Year
  Sex: Male

DRUGS (7)
  1. VENTOLIN HFA [Suspect]
     Active Substance: ALBUTEROL SULFATE
     Indication: DYSPNOEA
     Dosage: 2 PUFF(S), PRN
     Route: 055
  2. VENTOLIN HFA [Suspect]
     Active Substance: ALBUTEROL SULFATE
     Indication: LUNG DISORDER
  3. TIKOSYN [Concomitant]
     Active Substance: DOFETILIDE
  4. ADVAIR DISKUS [Suspect]
     Active Substance: FLUTICASONE PROPIONATE\SALMETEROL XINAFOATE
     Indication: LUNG DISORDER
  5. ADVAIR DISKUS [Suspect]
     Active Substance: FLUTICASONE PROPIONATE\SALMETEROL XINAFOATE
     Indication: DYSPNOEA
     Dosage: 1 PUFF(S), BID
     Route: 055
  6. PRADAXA [Concomitant]
     Active Substance: DABIGATRAN ETEXILATE MESYLATE
  7. ASPIRIN (BABY) [Concomitant]
     Active Substance: ASPIRIN

REACTIONS (7)
  - Drug ineffective [Unknown]
  - Cardiac arrest [Fatal]
  - Bladder neoplasm [Unknown]
  - Procedural complication [Fatal]
  - Pulmonary embolism [Fatal]
  - Bladder operation [Fatal]
  - Bladder neoplasm surgery [Unknown]

NARRATIVE: CASE EVENT DATE: 201710
